FAERS Safety Report 5381689-X (Version None)
Quarter: 2007Q3

REPORT INFORMATION
  Report Type: 
  Country: None (occurrence: None)
  Receive Date: 20070705
  Receipt Date: 20070705
  Transmission Date: 20080115
  Serious: Yes (Hospitalization)
  Sender: FDA-Public Use
  Company Number: None

PATIENT
  Age: 83 Year
  Sex: Female
  Weight: 86.7 kg

DRUGS (2)
  1. INDOMETHACIN [Suspect]
     Indication: GOUT
     Dosage: 25 MG TID PO
     Route: 048
     Dates: start: 20070519, end: 20070524
  2. MIRALAX [Suspect]
     Indication: CONSTIPATION
     Dosage: 17 GRAM DAILY PO
     Route: 048
     Dates: start: 20070519, end: 20070527

REACTIONS (3)
  - DEHYDRATION [None]
  - DIARRHOEA [None]
  - RENAL FAILURE ACUTE [None]
